FAERS Safety Report 7778905-3 (Version None)
Quarter: 2011Q3

REPORT INFORMATION
  Report Type: 
  Country: None (occurrence: None)
  Receive Date: 20110926
  Receipt Date: 20100915
  Transmission Date: 20111222
  Serious: No
  Sender: FDA-Public Use
  Company Number: US-ALLERGAN-1011929US

PATIENT
  Age: 32 Year
  Sex: Female

DRUGS (2)
  1. RETIN-A [Concomitant]
     Dosage: UNK
     Route: 061
     Dates: start: 20100902
  2. AZELEXA? [Suspect]
     Indication: SKIN DISORDER
     Dosage: UNK
     Route: 061
     Dates: start: 20100902, end: 20100913

REACTIONS (1)
  - BURNING SENSATION [None]
